FAERS Safety Report 10797720 (Version 2)
Quarter: 2015Q4

REPORT INFORMATION
  Report Type: Spontaneous
  Country: US (occurrence: US)
  Receive Date: 20150216
  Receipt Date: 20151215
  Transmission Date: 20160304
  Serious: No
  Sender: FDA-Public Use
  Company Number: US-PFIZER INC-2015048825

PATIENT
  Sex: Female

DRUGS (1)
  1. EXEMESTANE. [Suspect]
     Active Substance: EXEMESTANE
     Indication: BREAST CANCER FEMALE
     Dosage: UNK
     Dates: start: 201410

REACTIONS (5)
  - Dizziness [Unknown]
  - Nausea [Unknown]
  - Thinking abnormal [Unknown]
  - Influenza like illness [Unknown]
  - Balance disorder [Unknown]
